FAERS Safety Report 7044192-7 (Version None)
Quarter: 2010Q4

REPORT INFORMATION
  Report Type: 
  Country: None (occurrence: None)
  Receive Date: 20101013
  Receipt Date: 20100827
  Transmission Date: 20110411
  Serious: No
  Sender: FDA-Public Use
  Company Number: US-PFIZER INC-2010128064

PATIENT
  Sex: Female

DRUGS (15)
  1. ZITHROMAX [Suspect]
     Dosage: UNK
  2. PRISTIQ [Suspect]
     Indication: DEPRESSION
     Dosage: 50 MG, DAILY
     Dates: start: 20090901
  3. CALCIUM [Concomitant]
     Dosage: UNK
  4. TYLENOL [Concomitant]
     Dosage: UNK
  5. VITAMIN D [Concomitant]
     Dosage: UNK
  6. ACETYLSALICYLIC ACID [Concomitant]
     Dosage: UNK
  7. STOOL SOFTENER [Concomitant]
     Dosage: UNK
  8. AMITIZA [Concomitant]
     Dosage: UNK
  9. FUROSEMIDE [Concomitant]
     Dosage: UNK
  10. DIGOXIN [Concomitant]
     Dosage: UNK
  11. SIMVASTATIN [Concomitant]
     Dosage: UNK
  12. METHIMAZOLE [Concomitant]
     Dosage: UNK
  13. POTASSIUM [Concomitant]
     Dosage: UNK
  14. ALBUTEROL [Concomitant]
     Dosage: UNK
  15. BUDESONIDE [Concomitant]
     Dosage: UNK

REACTIONS (1)
  - MEDICATION RESIDUE [None]
